FAERS Safety Report 19697455 (Version 1)
Quarter: 2021Q3

REPORT INFORMATION
  Report Type: Spontaneous
  Country: US (occurrence: US)
  Receive Date: 20210813
  Receipt Date: 20210813
  Transmission Date: 20211014
  Serious: Yes (Hospitalization)
  Sender: FDA-Public Use
  Company Number: None

PATIENT
  Sex: Male

DRUGS (18)
  1. TALTZ [Suspect]
     Active Substance: IXEKIZUMAB
     Indication: PSORIASIS
     Dosage: OTHER FREQUENCY:Q 4 WKS;?
     Route: 058
     Dates: start: 20210331
  2. METFORMIN [Concomitant]
     Active Substance: METFORMIN HYDROCHLORIDE
  3. METPRO/HCTZ [Concomitant]
  4. DOCUSATE [Concomitant]
     Active Substance: DOCUSATE
  5. HUMATROPE [Concomitant]
     Active Substance: SOMATROPIN
  6. NEUPRO [Concomitant]
     Active Substance: ROTIGOTINE
  7. VICTOZA [Concomitant]
     Active Substance: LIRAGLUTIDE
  8. AMBIEN [Concomitant]
     Active Substance: ZOLPIDEM TARTRATE
  9. BENICAR HCT [Concomitant]
     Active Substance: HYDROCHLOROTHIAZIDE\OLMESARTAN MEDOXOMIL
  10. FLUTICASONE. [Concomitant]
     Active Substance: FLUTICASONE
  11. HYDROCHLOROT [Concomitant]
     Active Substance: HYDROCHLOROTHIAZIDE
  12. STELARA [Concomitant]
     Active Substance: USTEKINUMAB
  13. FENOFIBRATE. [Concomitant]
     Active Substance: FENOFIBRATE
  14. NEURONTIN [Concomitant]
     Active Substance: GABAPENTIN
  15. XANAX [Concomitant]
     Active Substance: ALPRAZOLAM
  16. ADIPEX [Concomitant]
     Active Substance: PHENTERMINE
  17. CIALIS [Concomitant]
     Active Substance: TADALAFIL
  18. NEXIUM [Concomitant]
     Active Substance: ESOMEPRAZOLE MAGNESIUM

REACTIONS (2)
  - Condition aggravated [None]
  - Muscle rupture [None]
